FAERS Safety Report 18713464 (Version 1)
Quarter: 2021Q1

REPORT INFORMATION
  Report Type: Spontaneous
  Country: US (occurrence: US)
  Receive Date: 20210107
  Receipt Date: 20210107
  Transmission Date: 20210419
  Serious: Yes (Death)
  Sender: FDA-Public Use
  Company Number: US-ALVOGEN-2021-ALVOGEN-115888

PATIENT
  Age: 49 Year
  Sex: Male

DRUGS (4)
  1. ZALEPLON. [Suspect]
     Active Substance: ZALEPLON
     Indication: SUICIDE ATTEMPT
     Route: 048
  2. PAROXETINE. [Suspect]
     Active Substance: PAROXETINE
     Indication: SUICIDE ATTEMPT
     Route: 048
  3. ACETAMINOPHEN/SALICYLATE [Suspect]
     Active Substance: ACETAMINOPHEN\SALICYLIC ACID
     Indication: SUICIDE ATTEMPT
     Route: 048
  4. GABAPENTIN. [Suspect]
     Active Substance: GABAPENTIN
     Indication: SUICIDE ATTEMPT
     Route: 048

REACTIONS (1)
  - Completed suicide [Fatal]
